FAERS Safety Report 6645903-2 (Version None)
Quarter: 2010Q1

REPORT INFORMATION
  Report Type: 
  Country: None (occurrence: None)
  Receive Date: 20100323
  Receipt Date: 20100312
  Transmission Date: 20100710
  Serious: Yes (Other)
  Sender: FDA-Public Use
  Company Number: PHHY2010CA15782

PATIENT
  Sex: Female

DRUGS (5)
  1. ALISKIREN ALI+ [Suspect]
     Indication: HYPERTENSION
     Dosage: 150 MG
     Route: 048
     Dates: start: 20100205, end: 20100310
  2. MICARDIS HCT [Concomitant]
     Dosage: 120/80, IU
  3. SYNTHROID [Concomitant]
     Dosage: 0.2 IU
  4. ADALAT CC [Concomitant]
     Dosage: 20 IU
  5. PRAVACHOL [Concomitant]
     Dosage: 20 IU

REACTIONS (1)
  - CONTUSION [None]
